FAERS Safety Report 26152255 (Version 1)
Quarter: 2025Q4

REPORT INFORMATION
  Report Type: Spontaneous
  Country: CN (occurrence: CN)
  Receive Date: 20251214
  Receipt Date: 20251214
  Transmission Date: 20260117
  Serious: Yes (Other)
  Sender: ROCHE
  Company Number: CN-ROCHE-10000455336

PATIENT
  Age: 54 Year
  Sex: Male

DRUGS (16)
  1. BEVACIZUMAB [Suspect]
     Active Substance: BEVACIZUMAB
     Indication: Hepatic cancer
  2. BEVACIZUMAB [Suspect]
     Active Substance: BEVACIZUMAB
  3. SINTILIMAB [Suspect]
     Active Substance: SINTILIMAB
     Indication: Hepatic cancer
  4. SINTILIMAB [Suspect]
     Active Substance: SINTILIMAB
  5. EPIRUBICIN [Suspect]
     Active Substance: EPIRUBICIN
     Indication: Hepatic cancer
  6. EPIRUBICIN [Suspect]
     Active Substance: EPIRUBICIN
  7. ETHIODIZED OIL [Suspect]
     Active Substance: ETHIODIZED OIL
     Indication: Hepatic cancer
  8. ETHIODIZED OIL [Suspect]
     Active Substance: ETHIODIZED OIL
  9. OXALIPLATIN [Suspect]
     Active Substance: OXALIPLATIN
     Indication: Hepatic cancer
  10. OXALIPLATIN [Suspect]
     Active Substance: OXALIPLATIN
  11. LEUCOVORIN CALCIUM [Suspect]
     Active Substance: LEUCOVORIN CALCIUM
     Indication: Hepatic cancer
  12. LEUCOVORIN CALCIUM [Suspect]
     Active Substance: LEUCOVORIN CALCIUM
  13. FLUOROURACIL [Suspect]
     Active Substance: FLUOROURACIL
     Indication: Hepatic cancer
     Route: 040
  14. FLUOROURACIL [Suspect]
     Active Substance: FLUOROURACIL
  15. FLUOROURACIL [Suspect]
     Active Substance: FLUOROURACIL
  16. FLUOROURACIL [Suspect]
     Active Substance: FLUOROURACIL
     Route: 040

REACTIONS (3)
  - Myelosuppression [Recovered/Resolved]
  - Disease progression [Unknown]
  - Off label use [Unknown]
